FAERS Safety Report 4413191-3 (Version None)
Quarter: 2004Q3

REPORT INFORMATION
  Report Type: 
  Country: None (occurrence: None)
  Receive Date: 20040802
  Receipt Date: 20040609
  Transmission Date: 20050211
  Serious: Yes (Death, Congenital Anomaly)
  Sender: FDA-Public Use
  Company Number: DE-GLAXOSMITHKLINE-D0043961B

PATIENT
  Sex: Female

DRUGS (3)
  1. ZOVIRAX [Suspect]
     Dates: end: 20021101
  2. L-THYROXIN-HENNING [Concomitant]
  3. YASMIN [Concomitant]

REACTIONS (3)
  - DRUG EXPOSURE DURING PREGNANCY [None]
  - SKELETON DYSPLASIA [None]
  - THANATOPHORIC DWARFISM [None]
